FAERS Safety Report 21678264 (Version 2)
Quarter: 2023Q1

REPORT INFORMATION
  Report Type: Report from Study
  Country: US (occurrence: US)
  Receive Date: 20221203
  Receipt Date: 20230107
  Transmission Date: 20230417
  Serious: Yes (Other)
  Sender: FDA-Public Use
  Company Number: US-drreddys-CLI/USA/22/0157622

PATIENT
  Age: 24 Year
  Sex: Female

DRUGS (2)
  1. ZENATANE [Suspect]
     Active Substance: ISOTRETINOIN
     Indication: Acne
     Dosage: 02 NOVEMBER 2022 01:50:38 PM, 27 SEPTEMBER 2022 04:43:05 PM, 25 AUGUST 2022 02:59:45 PM, 17 FEBRUARY
     Dates: start: 20220825, end: 20221119
  2. ZENATANE [Suspect]
     Active Substance: ISOTRETINOIN
     Dosage: PATIENT WAS TAKING AVERAGE OF 60MG: 40MG PILLS QD (40) AND BID (80) ALTERNATING
     Dates: start: 20220825, end: 20221119

REACTIONS (3)
  - Abortion induced [Unknown]
  - Exposure during pregnancy [Unknown]
  - Incorrect dose administered [Unknown]

NARRATIVE: CASE EVENT DATE: 20221205
